FAERS Safety Report 6929352-5 (Version None)
Quarter: 2010Q3

REPORT INFORMATION
  Report Type: 
  Country: None (occurrence: None)
  Receive Date: 20100818
  Receipt Date: 20100804
  Transmission Date: 20110219
  Serious: Yes (Hospitalization, Other)
  Sender: FDA-Public Use
  Company Number: US-ELI_LILLY_AND_COMPANY-US201008002129

PATIENT
  Sex: Female

DRUGS (3)
  1. FORTEO [Suspect]
     Indication: OSTEOPOROSIS
     Dosage: 20 UG, DAILY (1/D)
  2. ASPIRIN [Concomitant]
     Dosage: 81 MG, UNK
  3. CALCIUM W/VITAMIN D NOS [Concomitant]

REACTIONS (25)
  - AGEUSIA [None]
  - ALOPECIA [None]
  - AMNESIA [None]
  - ASTHENIA [None]
  - BALANCE DISORDER [None]
  - BLOOD GLUCOSE INCREASED [None]
  - DECREASED APPETITE [None]
  - DIARRHOEA [None]
  - DYSSTASIA [None]
  - GAIT DISTURBANCE [None]
  - HAIR GROWTH ABNORMAL [None]
  - HUNGER [None]
  - INJECTION SITE HAEMATOMA [None]
  - LUNG DISORDER [None]
  - MALAISE [None]
  - MASS [None]
  - NAUSEA [None]
  - NECK DEFORMITY [None]
  - OEDEMA PERIPHERAL [None]
  - PNEUMONIA [None]
  - SKIN DISCOLOURATION [None]
  - THROAT TIGHTNESS [None]
  - VISUAL ACUITY REDUCED [None]
  - VOMITING [None]
  - WEIGHT DECREASED [None]
